FAERS Safety Report 5395510-7 (Version None)
Quarter: 2007Q3

REPORT INFORMATION
  Report Type: 
  Country: None (occurrence: None)
  Receive Date: 20070724
  Receipt Date: 20070719
  Transmission Date: 20080115
  Serious: Yes (Other)
  Sender: FDA-Public Use
  Company Number: US-ASTRAZENECA-2006UW19342

PATIENT
  Age: 65 Year
  Sex: Female
  Weight: 61.2 kg

DRUGS (8)
  1. CRESTOR [Suspect]
     Indication: BLOOD CHOLESTEROL INCREASED
     Route: 048
     Dates: start: 20060914, end: 20061001
  2. VALIUM [Concomitant]
  3. FLONASE [Concomitant]
  4. MACROBID [Concomitant]
  5. ACTONEL [Concomitant]
  6. VAGIFEM [Concomitant]
     Route: 048
     Dates: start: 20060401
  7. B-12 SHOT [Concomitant]
  8. VITAMIN D [Concomitant]

REACTIONS (16)
  - ALOPECIA [None]
  - ANURIA [None]
  - ASTHENIA [None]
  - DEHYDRATION [None]
  - DIARRHOEA [None]
  - DIZZINESS [None]
  - IMMUNE SYSTEM DISORDER [None]
  - MUSCULAR WEAKNESS [None]
  - MYALGIA [None]
  - OESTROGEN DEFICIENCY [None]
  - RASH [None]
  - SYNCOPE [None]
  - UPPER RESPIRATORY TRACT INFECTION [None]
  - VAGINAL DISORDER [None]
  - VOMITING [None]
  - VULVOVAGINAL DRYNESS [None]
